FAERS Safety Report 15606590 (Version 1)
Quarter: 2018Q4

REPORT INFORMATION
  Report Type: Spontaneous
  Country: US (occurrence: US)
  Receive Date: 20181107
  Receipt Date: 20181107
  Transmission Date: 20190205
  Serious: No
  Sender: FDA-Public Use
  Company Number: None

PATIENT
  Age: 70 Year
  Sex: Female
  Weight: 56.7 kg

DRUGS (5)
  1. SIMETHICONE (DIMETHICONE) [Concomitant]
     Active Substance: DIMETHICONE
  2. FIBOS [Concomitant]
  3. FAMOTIDINE. [Concomitant]
     Active Substance: FAMOTIDINE
  4. CALCIUM D [Concomitant]
     Active Substance: CALCIUM\VITAMIN D
  5. HYOSCYAMINE. [Suspect]
     Active Substance: HYOSCYAMINE
     Indication: IRRITABLE BOWEL SYNDROME
     Dosage: ?          QUANTITY:125 MG MILLIGRAM(S);OTHER FREQUENCY:AS NEEDED, 2-3/DAY;?
     Route: 048
     Dates: end: 20181010

REACTIONS (3)
  - Euphoric mood [None]
  - Insomnia [None]
  - Feeling jittery [None]

NARRATIVE: CASE EVENT DATE: 20181018
